FAERS Safety Report 10120997 (Version 1)
Quarter: 2014Q2

REPORT INFORMATION
  Report Type: Spontaneous
  Country: JP (occurrence: JP)
  Receive Date: 20140425
  Receipt Date: 20140425
  Transmission Date: 20141212
  Serious: Yes (Other)
  Sender: FDA-Public Use
  Company Number: JP-GLAXOSMITHKLINE-B0987668A

PATIENT
  Age: 85 Year
  Sex: Female

DRUGS (2)
  1. VALTREX [Suspect]
     Indication: HERPES ZOSTER
     Dosage: 1000MG THREE TIMES PER DAY
     Route: 048
     Dates: start: 20140415, end: 20140418
  2. EXFORGE [Concomitant]
     Indication: HYPERTENSION
     Route: 048

REACTIONS (2)
  - Loss of control of legs [Unknown]
  - Dysarthria [Unknown]
